FAERS Safety Report 4382642-5 (Version None)
Quarter: 2004Q2

REPORT INFORMATION
  Report Type: 
  Country: None (occurrence: None)
  Receive Date: 20040622
  Receipt Date: 20040421
  Transmission Date: 20050107
  Serious: Yes (Hospitalization)
  Sender: FDA-Public Use
  Company Number: JP-GLAXOSMITHKLINE-B0330990A

PATIENT
  Age: 73 Year
  Sex: Female
  Weight: 59 kg

DRUGS (5)
  1. PAXIL [Suspect]
     Indication: DEPRESSION
     Route: 048
     Dates: start: 20040213, end: 20040413
  2. GASMOTIN [Concomitant]
     Indication: DECREASED APPETITE
     Dosage: 15MG PER DAY
     Route: 048
     Dates: start: 20030224
  3. MAGNESIUM OXIDE [Concomitant]
     Indication: CONSTIPATION
     Dosage: 15G PER DAY
     Route: 048
     Dates: start: 20030224
  4. GASTER [Concomitant]
     Indication: DECREASED APPETITE
     Dosage: 40MG PER DAY
     Route: 048
     Dates: start: 20030309
  5. PARIET [Concomitant]
     Indication: DECREASED APPETITE
     Dosage: 20MG PER DAY
     Route: 048
     Dates: start: 20030224, end: 20030308

REACTIONS (6)
  - DEHYDRATION [None]
  - DEPRESSED LEVEL OF CONSCIOUSNESS [None]
  - HYPERREFLEXIA [None]
  - MUSCULOSKELETAL STIFFNESS [None]
  - PYREXIA [None]
  - SEROTONIN SYNDROME [None]
